FAERS Safety Report 8785529 (Version 1)
Quarter: 2012Q4

REPORT INFORMATION
  Report Type: 
  Country: GB (occurrence: GB)
  Receive Date: 20120914
  Receipt Date: 20120914
  Transmission Date: 20130627
  Serious: Yes (Other)
  Sender: FDA-Public Use
  Company Number: GB-PFIZER INC-2012222340

PATIENT
  Age: 56 Year
  Sex: Female
  Weight: 101.6 kg

DRUGS (5)
  1. AROMASIN [Suspect]
     Indication: HORMONE THERAPY
     Dosage: 25 mg
     Dates: start: 201011
  2. ARIMIDEX [Concomitant]
     Dosage: 1 mg, UNK
  3. CO-CODAMOL [Concomitant]
     Indication: PAIN
     Dosage: 500 (no units provided)
  4. IBUPROFEN [Concomitant]
     Indication: PAIN
     Dosage: 500 (no units provided)
  5. METFORMIN [Concomitant]
     Indication: DIABETES MELLITUS
     Dosage: 500 mg, UNK

REACTIONS (4)
  - Abdominal distension [Not Recovered/Not Resolved]
  - Hepatomegaly [Not Recovered/Not Resolved]
  - Splenomegaly [Not Recovered/Not Resolved]
  - Abdominal pain [Not Recovered/Not Resolved]
